FAERS Safety Report 8175006-X (Version None)
Quarter: 2012Q1

REPORT INFORMATION
  Report Type: 
  Country: None (occurrence: None)
  Receive Date: 20120229
  Receipt Date: 20110202
  Transmission Date: 20120608
  Serious: No
  Sender: FDA-Public Use
  Company Number: US-GLAXOSMITHKLINE-A0912052A

PATIENT
  Age: 84 Year
  Sex: Male

DRUGS (3)
  1. MELPHALAN HYDROCHLORIDE [Suspect]
     Indication: PRODUCT USED FOR UNKNOWN INDICATION
     Dates: start: 20090301
  2. REVLIMID [Suspect]
     Indication: MULTIPLE MYELOMA
     Dosage: 10MG ALTERNATE DAYS
     Route: 048
     Dates: start: 20090201
  3. PLAVIX [Concomitant]
     Dosage: 75MG PER DAY

REACTIONS (1)
  - PLATELET COUNT DECREASED [None]
